FAERS Safety Report 5667206-5 (Version None)
Quarter: 2008Q1

REPORT INFORMATION
  Report Type: 
  Country: None (occurrence: None)
  Receive Date: 20080315
  Receipt Date: 20080114
  Transmission Date: 20080703
  Serious: No
  Sender: FDA-Public Use
  Company Number: US-ABBOTT-08P-163-0433735-00

PATIENT
  Sex: Female
  Weight: 54.026 kg

DRUGS (7)
  1. HUMIRA [Suspect]
     Indication: RHEUMATOID ARTHRITIS
     Route: 058
     Dates: start: 20060801, end: 20071105
  2. HUMIRA [Suspect]
     Route: 058
     Dates: start: 20071226
  3. ERYTHROMYCIN [Suspect]
     Indication: SINUSITIS
     Route: 048
  4. CEFDINIR [Suspect]
     Indication: SINUSITIS
     Route: 048
     Dates: start: 20071101, end: 20071116
  5. AUGMENTIN XR [Suspect]
     Indication: SINUSITIS
     Route: 048
     Dates: end: 20071223
  6. PREDNISONE [Concomitant]
     Indication: SYSTEMIC LUPUS ERYTHEMATOSUS
     Route: 048
     Dates: start: 20071218, end: 20071225
  7. PREDNISONE [Concomitant]
     Route: 048
     Dates: start: 20071225

REACTIONS (4)
  - ABDOMINAL PAIN UPPER [None]
  - DIARRHOEA [None]
  - SINUSITIS [None]
  - SYSTEMIC LUPUS ERYTHEMATOSUS [None]
